FAERS Safety Report 21389675 (Version 2)
Quarter: 2022Q4

REPORT INFORMATION
  Report Type: Spontaneous
  Country: CA (occurrence: None)
  Receive Date: 20220929
  Receipt Date: 20221007
  Transmission Date: 20230112
  Serious: Yes (Other)
  Sender: FDA-Public Use
  Company Number: CA-ROCHE-3187486

PATIENT
  Age: 63 Year
  Sex: Female

DRUGS (1)
  1. RITUXIMAB [Suspect]
     Active Substance: RITUXIMAB
     Indication: Product used for unknown indication
     Route: 065
     Dates: start: 2018

REACTIONS (4)
  - Unevaluable event [Unknown]
  - Hypoaesthesia [Unknown]
  - Blindness unilateral [Unknown]
  - Vision blurred [Unknown]

NARRATIVE: CASE EVENT DATE: 20200801
